FAERS Safety Report 15143381 (Version 7)
Quarter: 2019Q1

REPORT INFORMATION
  Report Type: Spontaneous
  Country: DE (occurrence: DE)
  Receive Date: 20180713
  Receipt Date: 20190214
  Transmission Date: 20190417
  Serious: Yes (Hospitalization, Other)
  Sender: FDA-Public Use
  Company Number: DE-AUROBINDO-AUR-APL-2017-47500

PATIENT

DRUGS (34)
  1. OXALIPLATIN. [Suspect]
     Active Substance: OXALIPLATIN
     Dosage: 244 MG, QWK (123.76 MG, Q2W)
     Route: 042
     Dates: start: 20160815
  2. 5-FLUOROURACIL [Suspect]
     Active Substance: FLUOROURACIL
     Dosage: 724 MG, Q2WK (4344-5792 MG)
     Route: 040
     Dates: start: 20160829, end: 20161107
  3. FOLINIC ACID [Suspect]
     Active Substance: LEUCOVORIN
     Indication: COLORECTAL CANCER
     Dosage: 1 DF, Q2WK (362-364 MG)
     Route: 042
     Dates: start: 20151228, end: 20161107
  4. OXALIPLATIN. [Suspect]
     Active Substance: OXALIPLATIN
     Dosage: 122 MILLIGRAM, 2 WEEKS
     Route: 042
     Dates: start: 20160509
  5. BISOPROLOL [Concomitant]
     Active Substance: BISOPROLOL
     Indication: HYPERTENSION
     Dosage: 5 MILLIGRAM, ONCE A DAY
     Route: 048
  6. OXALIPLATIN. [Suspect]
     Active Substance: OXALIPLATIN
     Dosage: 153.85 MILLIGRAM Q2WK (123.76 OR 122 MG)
     Route: 042
     Dates: start: 20151228
  7. DEXAMETHASON [Concomitant]
     Active Substance: DEXAMETHASONE
     Indication: NAUSEA
     Dosage: 8 MILLIGRAM, BEFORE CHEMOTHERAPY
     Route: 042
     Dates: start: 20151228
  8. BEVACIZUMAB. [Concomitant]
     Active Substance: BEVACIZUMAB
     Dosage: 355 MILLIGRAM, 2 WEEK
     Route: 042
     Dates: start: 20160404
  9. OXALIPLATIN. [Suspect]
     Active Substance: OXALIPLATIN
     Indication: COLORECTAL CANCER METASTATIC
     Dosage: 123.76 OR 122 MG (1 IN 2 WK), 307.7 MG FOR 1 WEEK
     Route: 042
     Dates: start: 20151228
  10. AVASTIN [Suspect]
     Active Substance: BEVACIZUMAB
     Dosage: 355 MILLIGRAM, Q2WK
     Route: 042
     Dates: start: 20160404
  11. AVASTIN [Suspect]
     Active Substance: BEVACIZUMAB
     Dosage: 350 MILLIGRAM, 2 WEEKS
     Route: 042
     Dates: start: 20161024
  12. PEGFILGRASTIM [Suspect]
     Active Substance: PEGFILGRASTIM
     Indication: NEUTROPENIA
     Dosage: 12 MILLIGRAM, EVERY WEEK
     Route: 042
     Dates: start: 20151228
  13. ONDANSETRON [Concomitant]
     Active Substance: ONDANSETRON
     Dosage: 8 MILLIGRAM, ONCE A DAY
     Route: 042
     Dates: start: 20151228
  14. OXALIPLATIN. [Suspect]
     Active Substance: OXALIPLATIN
     Dosage: 123.76 MG, Q2WK
     Route: 042
     Dates: start: 20160509
  15. OXALIPLATIN. [Suspect]
     Active Substance: OXALIPLATIN
     Dosage: 123.76 MILLIGRAM, 122 MG, Q2W, 244 MG FOR 1 WEEK
     Route: 042
     Dates: start: 20160815
  16. IRINOTECAN [Suspect]
     Active Substance: IRINOTECAN
     Indication: OFF LABEL USE
     Dosage: 597.3 MILLIGRAM, EVERY WEEK
     Route: 042
     Dates: start: 20151228
  17. IRINOTECAN [Suspect]
     Active Substance: IRINOTECAN
     Indication: COLORECTAL CANCER METASTATIC
     Dosage: 597.3 MILLIGRAM, EVERY WEEK
     Route: 042
     Dates: start: 20161107
  18. IRINOTECAN [Suspect]
     Active Substance: IRINOTECAN
     Dosage: 298.65 MILLIGRAM Q2WK
     Route: 042
     Dates: start: 20151228
  19. AVASTIN [Suspect]
     Active Substance: BEVACIZUMAB
     Dosage: 710 MILLIGRAM, EVERY WEEK
     Route: 042
     Dates: start: 20060404
  20. AVASTIN [Suspect]
     Active Substance: BEVACIZUMAB
     Dosage: 710 MILLIGRAM, EVERY WEEK
     Route: 042
     Dates: start: 20161024
  21. 5-FLUOROURACIL [Suspect]
     Active Substance: FLUOROURACIL
     Dosage: 1 DOSAGE FORM, 2 WEEK, 1 DF, Q2WK (4344-5792 MG)
     Route: 040
     Dates: start: 20151228, end: 20160511
  22. FOLINIC ACID [Suspect]
     Active Substance: LEUCOVORIN
     Dosage: 2 DF, Q2WK (362-364 MG)
     Route: 042
     Dates: start: 20151228, end: 20161107
  23. IRINOTECAN [Suspect]
     Active Substance: IRINOTECAN
     Dosage: 326 MG, Q2WK
     Route: 042
     Dates: start: 20161107
  24. AVASTIN [Suspect]
     Active Substance: BEVACIZUMAB
     Indication: COLORECTAL CANCER METASTATIC
     Dosage: 700 MILLIGRAM, EVERY WEEK (350 MG, 2 TIMES/WK)
     Route: 042
     Dates: start: 20151228
  25. AVASTIN [Suspect]
     Active Substance: BEVACIZUMAB
     Dosage: 700 MILLIGRAM, EVERY WEEK (350 MG, 2 TIMES/WK)
     Route: 042
     Dates: start: 20151228
  26. AVASTIN [Suspect]
     Active Substance: BEVACIZUMAB
     Dosage: 710 MG, QWK
     Route: 042
     Dates: start: 20160404
  27. 5-FLUOROURACIL [Suspect]
     Active Substance: FLUOROURACIL
     Dosage: 1448 MILLIGRAM, EVERY WEEK (724 MG, 2 TIMES/WK (4344-5792 MG))
     Route: 040
     Dates: start: 20160829, end: 20161107
  28. BEVACIZUMAB. [Concomitant]
     Active Substance: BEVACIZUMAB
     Indication: COLORECTAL CANCER METASTATIC
     Dosage: 350 MILLIGRAM, 2WEEK
     Route: 042
     Dates: start: 20151228
  29. OXALIPLATIN. [Suspect]
     Active Substance: OXALIPLATIN
     Dosage: 244 MG, QWK
     Route: 042
     Dates: start: 20160509
  30. 5-FLUOROURACIL [Suspect]
     Active Substance: FLUOROURACIL
     Indication: COLORECTAL CANCER METASTATIC
     Dosage: 64 DF, QWK (DOSE RANGE 4344- 5792 MG)
     Route: 040
     Dates: start: 20151228, end: 20160511
  31. BEVACIZUMAB. [Concomitant]
     Active Substance: BEVACIZUMAB
     Dosage: 350 MILLIGRAM, 2 WEEK
     Route: 042
     Dates: start: 20161024
  32. PEGFILGRASTIM [Suspect]
     Active Substance: PEGFILGRASTIM
     Dosage: 6 MILLIGRAM, 14 DAYS
     Route: 042
     Dates: start: 20151228
  33. PANTOPRAZOL [Concomitant]
     Active Substance: PANTOPRAZOLE SODIUM
     Indication: PRODUCT USED FOR UNKNOWN INDICATION
     Dosage: 40 MILLIGRAM, ONCE A DAY
     Route: 048
     Dates: start: 20160619
  34. ONDANSETRON [Concomitant]
     Active Substance: ONDANSETRON
     Indication: NAUSEA
     Dosage: 6 MILLIGRAM, ONCE A DAY
     Route: 042
     Dates: start: 20151228

REACTIONS (3)
  - Liver abscess [Recovered/Resolved]
  - Perihepatic abscess [Recovered/Resolved]
  - Off label use [Unknown]

NARRATIVE: CASE EVENT DATE: 20160622
